FAERS Safety Report 10700417 (Version 1)
Quarter: 2015Q1

REPORT INFORMATION
  Report Type: Spontaneous
  Country: US (occurrence: None)
  Receive Date: 20150108
  Receipt Date: 20150108
  Transmission Date: 20150721
  Serious: Yes (Hospitalization)
  Sender: FDA-Public Use
  Company Number: None

PATIENT
  Age: 81 Year
  Sex: Female

DRUGS (1)
  1. IMBRUVICA [Suspect]
     Active Substance: IBRUTINIB
     Indication: CHRONIC LYMPHOCYTIC LEUKAEMIA
     Route: 048
     Dates: start: 20140116

REACTIONS (5)
  - Generalised tonic-clonic seizure [None]
  - Malignant neoplasm progression [None]
  - Breast cancer [None]
  - Atrial fibrillation [None]
  - Metastases to bone [None]

NARRATIVE: CASE EVENT DATE: 20141229
